FAERS Safety Report 16144464 (Version 4)
Quarter: 2019Q2

REPORT INFORMATION
  Report Type: Spontaneous
  Country: CA (occurrence: CA)
  Receive Date: 20190401
  Receipt Date: 20190620
  Transmission Date: 20190711
  Serious: Yes (Other)
  Sender: FDA-Public Use
  Company Number: CA-CELLTRION INC.-2019CA019091

PATIENT

DRUGS (8)
  1. ABILIFY [Concomitant]
     Active Substance: ARIPIPRAZOLE
     Dosage: 7 MG, DAILY
     Route: 048
  2. INFLECTRA [Suspect]
     Active Substance: INFLIXIMAB-DYYB
     Dosage: 500 MG/Q (EVERY) 0, 2, 6 WEEKS
     Route: 042
     Dates: start: 20190305
  3. BUSPIRONE [Concomitant]
     Active Substance: BUSPIRONE HYDROCHLORIDE
     Dosage: 10 MG, DAILY
     Route: 048
  4. INFLECTRA [Suspect]
     Active Substance: INFLIXIMAB-DYYB
     Dosage: 500 MG/Q (EVERY) 0, 2, 6 WEEKS
     Route: 042
     Dates: start: 20190415
  5. ESCITALOPRAM [Concomitant]
     Active Substance: ESCITALOPRAM OXALATE
     Dosage: 20 MG, DAILY
     Route: 048
  6. PRAZOSIN. [Concomitant]
     Active Substance: PRAZOSIN
     Dosage: 5 MG, DAILY
     Route: 048
  7. INFLECTRA [Suspect]
     Active Substance: INFLIXIMAB-DYYB
     Indication: CROHN^S DISEASE
     Dosage: 500 MG/Q (EVERY) 0, 2, 6 WEEKS
     Route: 042
  8. INFLECTRA [Suspect]
     Active Substance: INFLIXIMAB-DYYB
     Dosage: 500 MG/Q (EVERY) 0, 2, 6 WEEKS
     Route: 042
     Dates: start: 20190318

REACTIONS (11)
  - Feeling of body temperature change [Unknown]
  - Abdominal pain [Not Recovered/Not Resolved]
  - Oral candidiasis [Unknown]
  - Product use issue [Unknown]
  - Intestinal fistula [Unknown]
  - Oral herpes [Unknown]
  - Hypotonia [Unknown]
  - Condition aggravated [Recovering/Resolving]
  - Crohn^s disease [Recovering/Resolving]
  - Weight decreased [Unknown]
  - Off label use [Unknown]
